FAERS Safety Report 8652405 (Version 3)
Quarter: 2012Q4

REPORT INFORMATION
  Report Type: 
  Country: US (occurrence: US)
  Receive Date: 20120619
  Receipt Date: 20121016
  Transmission Date: 20130627
  Serious: Yes (Other)
  Sender: FDA-Public Use
  Company Number: US-009507513-2012SP026106

PATIENT
  Sex: Female

DRUGS (4)
  1. PEG-INTRON [Suspect]
     Indication: HEPATITIS C
     Dosage: 96 Microgram per kilogram, qw
     Route: 042
     Dates: start: 20120420
  2. REBETOL [Suspect]
     Indication: HEPATITIS C
     Dosage: UNK UNK, Unknown
     Route: 065
     Dates: start: 20120420
  3. VICTRELIS [Suspect]
     Indication: HEPATITIS C
     Dosage: UNK UNK, Unknown
     Route: 065
     Dates: start: 20120518
  4. OMEPRAZOLE [Concomitant]
     Dosage: 20 mg, UNK

REACTIONS (20)
  - Hyperthyroidism [Unknown]
  - Dehydration [Unknown]
  - Mood altered [Unknown]
  - Pain [Unknown]
  - Back pain [Unknown]
  - Confusional state [Unknown]
  - Feeling abnormal [Unknown]
  - Anxiety [Unknown]
  - Chills [Unknown]
  - Irritability [Unknown]
  - Headache [Unknown]
  - Fatigue [Unknown]
  - Alopecia [Unknown]
  - Memory impairment [Unknown]
  - Pruritus [Unknown]
  - Fatigue [Unknown]
  - Weight decreased [Unknown]
  - Decreased appetite [Unknown]
  - Nausea [Unknown]
  - Malaise [None]
